FAERS Safety Report 4510076-9 (Version None)
Quarter: 2004Q4

REPORT INFORMATION
  Report Type: 
  Country: None (occurrence: None)
  Receive Date: 20041124
  Receipt Date: 20041119
  Transmission Date: 20050328
  Serious: Yes (Other)
  Sender: FDA-Public Use
  Company Number: PHBS2004PT15619

PATIENT
  Age: 74 Year
  Sex: Female

DRUGS (4)
  1. VOLTAREN [Suspect]
     Indication: MYALGIA
     Dosage: 75 MG/DAY
     Route: 048
     Dates: start: 20041001, end: 20041101
  2. NEURONTIN [Concomitant]
  3. CORDARONE [Concomitant]
  4. ENALAPRIL MALEATE [Concomitant]

REACTIONS (4)
  - BLOOD GLUCOSE INCREASED [None]
  - CATARACT [None]
  - EYE DISORDER [None]
  - VISUAL DISTURBANCE [None]
